FAERS Safety Report 21189349 (Version 2)
Quarter: 2022Q3

REPORT INFORMATION
  Report Type: Report from Study
  Country: CA (occurrence: CA)
  Receive Date: 20220809
  Receipt Date: 20220812
  Transmission Date: 20221027
  Serious: Yes (Other)
  Sender: FDA-Public Use
  Company Number: CA-BAYER-2022A110112

PATIENT
  Sex: Male

DRUGS (1)
  1. EYLEA [Suspect]
     Active Substance: AFLIBERCEPT
     Indication: Product used for unknown indication
     Dosage: UNK; SOLUTION FOR INJECTION; STRENGTH: 40MG/ML
     Route: 031

REACTIONS (3)
  - Macular hole [Unknown]
  - Blindness [Not Recovered/Not Resolved]
  - Depression [Unknown]
